FAERS Safety Report 12986508 (Version 2)
Quarter: 2016Q4

REPORT INFORMATION
  Report Type: Spontaneous
  Country: US (occurrence: US)
  Receive Date: 20161130
  Receipt Date: 20161228
  Transmission Date: 20170207
  Serious: Yes (Death, Other)
  Sender: FDA-Public Use
  Company Number: US-TEVA-716696USA

PATIENT
  Age: 39 Year
  Sex: Male

DRUGS (1)
  1. LOPERAMIDE [Suspect]
     Active Substance: LOPERAMIDE
     Indication: DRUG WITHDRAWAL SYNDROME
     Route: 048

REACTIONS (6)
  - Cardiac arrest [Fatal]
  - Pulmonary oedema [Not Recovered/Not Resolved]
  - Cardiomegaly [Not Recovered/Not Resolved]
  - Overdose [Not Recovered/Not Resolved]
  - Death [Fatal]
  - Arrhythmia [Unknown]
